FAERS Safety Report 12236847 (Version 1)
Quarter: 2016Q2

REPORT INFORMATION
  Report Type: Other
  Country: UA (occurrence: UA)
  Receive Date: 20160405
  Receipt Date: 20160405
  Transmission Date: 20160815
  Serious: Yes (Other)
  Sender: FDA-Public Use
  Company Number: UA-CIPLA LTD.-2016UA03210

PATIENT

DRUGS (4)
  1. LAMIVUDINE. [Suspect]
     Active Substance: LAMIVUDINE
     Dosage: UNK
     Route: 065
  2. STAVUDINE. [Suspect]
     Active Substance: STAVUDINE
     Dosage: UNK
     Route: 065
  3. EFAVIRENZ [Suspect]
     Active Substance: EFAVIRENZ
     Indication: HIV INFECTION
     Dosage: 600 MG, QD
     Route: 048
     Dates: start: 20081020
  4. EFAVIRENZ [Suspect]
     Active Substance: EFAVIRENZ
     Indication: CANDIDA INFECTION

REACTIONS (5)
  - Pruritus [Recovered/Resolved]
  - Sleep disorder [Recovered/Resolved]
  - Mood swings [Recovered/Resolved]
  - Tearfulness [Recovered/Resolved]
  - Aggression [Recovered/Resolved]

NARRATIVE: CASE EVENT DATE: 20090101
